FAERS Safety Report 11782217 (Version 1)
Quarter: 2015Q4

REPORT INFORMATION
  Report Type: Spontaneous
  Country: US (occurrence: US)
  Receive Date: 20151127
  Receipt Date: 20151127
  Transmission Date: 20160305
  Serious: Yes (Other)
  Sender: FDA-Public Use
  Company Number: US-AMGEN-USASP2015124202

PATIENT
  Age: 62 Year
  Sex: Female

DRUGS (1)
  1. PROLIA [Suspect]
     Active Substance: DENOSUMAB
     Indication: OSTEOPOROSIS POSTMENOPAUSAL
     Dosage: UNK UNK, Q6MO
     Route: 065
     Dates: start: 20151105

REACTIONS (6)
  - Immune system disorder [Unknown]
  - Pain in extremity [Unknown]
  - Sneezing [Unknown]
  - Kidney infection [Unknown]
  - Cystitis [Unknown]
  - Blood urine present [Unknown]
